FAERS Safety Report 23275067 (Version 2)
Quarter: 2023Q4

REPORT INFORMATION
  Report Type: Spontaneous
  Country: CZ (occurrence: CZ)
  Receive Date: 20231208
  Receipt Date: 20231221
  Transmission Date: 20240110
  Serious: Yes (Death, Life-Threatening)
  Sender: FDA-Public Use
  Company Number: CZ-BoehringerIngelheim-2023-BI-276989

PATIENT
  Age: 59 Year
  Sex: Female
  Weight: 70 kg

DRUGS (3)
  1. EMPAGLIFLOZIN [Suspect]
     Active Substance: EMPAGLIFLOZIN
     Indication: Type 2 diabetes mellitus
     Dates: end: 20230929
  2. METFORMIN [Suspect]
     Active Substance: METFORMIN HYDROCHLORIDE
     Indication: Type 2 diabetes mellitus
     Dosage: SIOFOR 1000, 1-1-1
  3. AMARYL [Concomitant]
     Active Substance: GLIMEPIRIDE
     Dosage: AMARYL 3, 1-0-0

REACTIONS (7)
  - Cardiac arrest [Fatal]
  - Infection [Unknown]
  - Ketoacidosis [Recovered/Resolved with Sequelae]
  - Acute kidney injury [Unknown]
  - Renal tubular acidosis [Unknown]
  - Acute myocardial infarction [Unknown]
  - Acidosis hyperchloraemic [Recovered/Resolved with Sequelae]

NARRATIVE: CASE EVENT DATE: 20230901
